FAERS Safety Report 22363139 (Version 3)
Quarter: 2023Q4

REPORT INFORMATION
  Report Type: Report from Study
  Country: US (occurrence: US)
  Receive Date: 20230525
  Receipt Date: 20231107
  Transmission Date: 20240109
  Serious: Yes (Other)
  Sender: FDA-Public Use
  Company Number: US-ABBVIE-5178438

PATIENT
  Sex: Male
  Weight: 67.131 kg

DRUGS (1)
  1. VENCLEXTA [Suspect]
     Active Substance: VENETOCLAX
     Indication: Acute myeloid leukaemia
     Dosage: FREQUENCY: 2 TABLET 100 MILLIGRAM, 5 DAYS/MONTHLY AND 28 CYCLE
     Route: 048
     Dates: start: 20210514

REACTIONS (3)
  - Haemoglobin decreased [Unknown]
  - Asthenia [Unknown]
  - Dizziness [Unknown]
